FAERS Safety Report 23968357 (Version 1)
Quarter: 2024Q2

REPORT INFORMATION
  Report Type: Report from Study
  Country: US (occurrence: US)
  Receive Date: 20240612
  Receipt Date: 20240612
  Transmission Date: 20240716
  Serious: Yes (Other)
  Sender: FDA-Public Use
  Company Number: US-ARGENX-2024-ARGX-US004106

PATIENT

DRUGS (1)
  1. VYVGART HYTRULO [Suspect]
     Active Substance: EFGARTIGIMOD ALFA\HYALURONIDASE-QVFC
     Indication: Product used for unknown indication
     Dosage: UNK
     Route: 058

REACTIONS (5)
  - Diverticulitis [Unknown]
  - Skin exfoliation [Unknown]
  - Injection site erythema [Recovered/Resolved]
  - Injection site pruritus [Unknown]
  - Cystitis [Unknown]
